FAERS Safety Report 12109370 (Version 1)
Quarter: 2016Q1

REPORT INFORMATION
  Report Type: Spontaneous
  Country: US (occurrence: US)
  Receive Date: 20160224
  Receipt Date: 20160224
  Transmission Date: 20160526
  Serious: No
  Sender: FDA-Public Use
  Company Number: US-BAUSCH-BL-2015-020309

PATIENT
  Sex: Female

DRUGS (3)
  1. LOTEMAX [Suspect]
     Active Substance: LOTEPREDNOL ETABONATE
     Indication: EYE IRRITATION
     Dosage: INSTILLED ONE DROP IN RIGHT EYE
     Route: 047
  2. SODIUM SULFACETAMIDE [Suspect]
     Active Substance: SULFACETAMIDE SODIUM
     Dosage: 1 DROP IN THE EYES EVERY OTHER DAY
     Route: 047
  3. SODIUM SULFACETAMIDE [Suspect]
     Active Substance: SULFACETAMIDE SODIUM
     Indication: EYE IRRITATION
     Dosage: ONE DROP IN THE EYES
     Route: 047

REACTIONS (3)
  - Abnormal sensation in eye [Recovered/Resolved]
  - Burning sensation [Recovered/Resolved]
  - Intraocular pressure increased [Recovered/Resolved]
